FAERS Safety Report 4885224-1 (Version None)
Quarter: 2005Q4

REPORT INFORMATION
  Report Type: 
  Country: None (occurrence: None)
  Receive Date: 20051216
  Receipt Date: 20051103
  Transmission Date: 20060501
  Serious: No
  Sender: FDA-Public Use
  Company Number: BDI-007698

PATIENT
  Age: 42 Year
  Sex: Female

DRUGS (1)
  1. MULTIHANCE [Suspect]
     Dosage: 20 ML ONCE IV
     Route: 042
     Dates: start: 20051029, end: 20051029

REACTIONS (4)
  - DIZZINESS [None]
  - FEELING HOT [None]
  - HEADACHE [None]
  - PALPITATIONS [None]
